FAERS Safety Report 6016750-X (Version None)
Quarter: 2008Q4

REPORT INFORMATION
  Report Type: 
  Country: None (occurrence: None)
  Receive Date: 20081222
  Receipt Date: 20081215
  Transmission Date: 20090506
  Serious: Yes (Other)
  Sender: FDA-Public Use
  Company Number: US-ROXANE LABORATORIES, INC.-2008-RO-00427RO

PATIENT
  Age: 28 Year
  Sex: Male

DRUGS (7)
  1. BALSALAZIDE DISODIUM [Suspect]
     Indication: COLITIS ULCERATIVE
  2. PREDNISONE TAB [Suspect]
     Indication: COLITIS ULCERATIVE
  3. MERCAPTOPURINE [Suspect]
     Indication: COLITIS ULCERATIVE
  4. CLARITHROMYCIN [Suspect]
     Indication: EOSINOPHILIC PNEUMONIA
  5. LIALDA [Suspect]
     Indication: COLITIS ULCERATIVE
  6. CYCLOSPORINE [Suspect]
     Indication: COLITIS ULCERATIVE
     Route: 042
  7. CYCLOSPORINE [Suspect]
     Route: 048

REACTIONS (3)
  - DIARRHOEA HAEMORRHAGIC [None]
  - DRUG INEFFECTIVE [None]
  - EOSINOPHILIC PNEUMONIA [None]
